FAERS Safety Report 7620291-3 (Version None)
Quarter: 2011Q3

REPORT INFORMATION
  Report Type: 
  Country: None (occurrence: None)
  Receive Date: 20110719
  Receipt Date: 20110711
  Transmission Date: 20111222
  Serious: Yes (Other)
  Sender: FDA-Public Use
  Company Number: PHHY2011US39958

PATIENT
  Sex: Female
  Weight: 80.272 kg

DRUGS (7)
  1. LEVOTHYROXINE SODIUM [Concomitant]
     Indication: HYPERTHYROIDISM
     Dosage: 88 MG
     Route: 048
     Dates: start: 20030101
  2. BISOPROLOL FUMARATE AND HYDROCHLOROTHIAZIDE [Concomitant]
     Indication: HYPERTENSION
     Dosage: 6.25 MG
     Route: 048
     Dates: start: 20030101
  3. RECLAST [Suspect]
     Indication: SENILE OSTEOPOROSIS
     Dosage: 5 MG YEARLY
     Route: 042
     Dates: start: 20100629
  4. GLUCOSAMINE [Concomitant]
     Indication: BONE DISORDER
     Dates: start: 20040101
  5. ASPIRIN [Concomitant]
     Indication: CARDIAC DISORDER
     Dosage: 8 MG
     Route: 048
     Dates: start: 20030101
  6. CALCIUM WITH VITAMIN D [Concomitant]
     Indication: OSTEOPOROSIS
     Dosage: 600 MG
     Dates: start: 20030101
  7. CEPHALEXIN [Concomitant]

REACTIONS (5)
  - DEMENTIA [None]
  - OSTEONECROSIS OF JAW [None]
  - SINUSITIS [None]
  - BREATH ODOUR [None]
  - BONE DISORDER [None]
